FAERS Safety Report 12270761 (Version 1)
Quarter: 2016Q2

REPORT INFORMATION
  Report Type: Spontaneous
  Country: JP (occurrence: JP)
  Receive Date: 20160415
  Receipt Date: 20160415
  Transmission Date: 20160815
  Serious: Yes (Other)
  Sender: FDA-Public Use
  Company Number: JP-TEVA-2016-JP-000750J

PATIENT
  Age: 73 Year
  Sex: Male

DRUGS (3)
  1. NEXIUM [Concomitant]
     Active Substance: ESOMEPRAZOLE MAGNESIUM
     Dosage: 10 MILLIGRAM DAILY;
     Route: 048
     Dates: start: 20151203
  2. FUROSEMIDE TABLET 40MG ^TEVA^ [Suspect]
     Active Substance: FUROSEMIDE
     Indication: OEDEMA
     Dosage: 160 MILLIGRAM DAILY;
     Route: 048
     Dates: start: 20160331
  3. NERISONA [Concomitant]
     Active Substance: DIFLUCORTOLONE VALERATE
     Route: 050
     Dates: start: 20160303

REACTIONS (1)
  - Internal haemorrhage [Recovering/Resolving]

NARRATIVE: CASE EVENT DATE: 20160402
